FAERS Safety Report 5164926-6 (Version None)
Quarter: 2006Q4

REPORT INFORMATION
  Report Type: 
  Country: None (occurrence: None)
  Receive Date: 20061124
  Receipt Date: 20061110
  Transmission Date: 20070319
  Serious: Yes (Death, Other)
  Sender: FDA-Public Use
  Company Number: AU-2006-035562

PATIENT
  Age: 65 Year
  Sex: Male

DRUGS (2)
  1. FLUDARABINE PHOSPHATE [Suspect]
     Indication: B-CELL LYMPHOMA
     Dosage: 3 CYCLES
  2. CYCLOPHOSPHAMIDE [Suspect]
     Indication: B-CELL LYMPHOMA
     Dosage: 3 CYCLES

REACTIONS (3)
  - LYMPHOMA [None]
  - MALIGNANT NEOPLASM PROGRESSION [None]
  - MYELODYSPLASTIC SYNDROME [None]
